FAERS Safety Report 24135264 (Version 3)
Quarter: 2025Q1

REPORT INFORMATION
  Report Type: Report from Study
  Country: US (occurrence: US)
  Receive Date: 20240725
  Receipt Date: 20250313
  Transmission Date: 20250409
  Serious: Yes (Other)
  Sender: ABBVIE
  Company Number: US-ABBVIE-5850516

PATIENT
  Age: 59 Year
  Sex: Female
  Weight: 78 kg

DRUGS (4)
  1. HUMIRA [Suspect]
     Active Substance: ADALIMUMAB
     Indication: Rheumatoid arthritis
     Route: 058
     Dates: start: 20210819
  2. HUMIRA [Suspect]
     Active Substance: ADALIMUMAB
     Route: 058
  3. METHOTREXATE [Concomitant]
     Active Substance: METHOTREXATE
     Indication: Product used for unknown indication
     Route: 048
     Dates: start: 202108
  4. TAMOXIFEN [Concomitant]
     Active Substance: TAMOXIFEN
     Indication: Product used for unknown indication
     Route: 048

REACTIONS (1)
  - Intervertebral disc protrusion [Unknown]

NARRATIVE: CASE EVENT DATE: 20240808
